FAERS Safety Report 9482886 (Version 1)
Quarter: 2013Q3

REPORT INFORMATION
  Report Type: Report from Study
  Country: CA (occurrence: CA)
  Receive Date: 20130828
  Receipt Date: 20130828
  Transmission Date: 20140515
  Serious: Yes (Other)
  Sender: FDA-Public Use
  Company Number: CA-JNJFOC-20130814073

PATIENT
  Sex: Female
  Weight: 110.5 kg

DRUGS (9)
  1. REMICADE [Suspect]
     Indication: CROHN^S DISEASE
     Route: 042
     Dates: start: 20061205
  2. VIRA [Concomitant]
     Route: 048
  3. COLACE [Concomitant]
     Route: 048
  4. MORPHINE [Concomitant]
     Dosage: Q3-4 HOURS
     Route: 058
  5. CALCIUM [Concomitant]
     Route: 048
  6. APO-CHLORAX [Concomitant]
     Route: 048
  7. SEROQUEL [Concomitant]
     Route: 048
  8. CELEXA [Concomitant]
     Route: 048
  9. WELLBUTRIN [Concomitant]
     Route: 048

REACTIONS (1)
  - Diabetes mellitus [Unknown]
